FAERS Safety Report 6519041-3 (Version None)
Quarter: 2009Q4

REPORT INFORMATION
  Report Type: 
  Country: None (occurrence: None)
  Receive Date: 20091228
  Receipt Date: 20091123
  Transmission Date: 20100525
  Serious: No
  Sender: FDA-Public Use
  Company Number: US-BAYER-200936885NA

PATIENT
  Age: 80 Year
  Sex: Male

DRUGS (6)
  1. LEVITRA [Suspect]
     Indication: ERECTILE DYSFUNCTION
     Dosage: UNIT DOSE: 10 MG
     Route: 048
     Dates: start: 20091015
  2. FOSINOPRIL SODIUM [Concomitant]
  3. DIGOXIN [Concomitant]
  4. LEXAPRO [Concomitant]
  5. ATENOLOL [Concomitant]
  6. WARFARIN SODIUM [Concomitant]

REACTIONS (1)
  - ERECTILE DYSFUNCTION [None]
